FAERS Safety Report 22137521 (Version 1)
Quarter: 2023Q1

REPORT INFORMATION
  Report Type: Spontaneous
  Country: US (occurrence: US)
  Receive Date: 20230325
  Receipt Date: 20230325
  Transmission Date: 20230418
  Serious: No
  Sender: FDA-Public Use
  Company Number: US-BRISTOL-MYERS SQUIBB COMPANY-2023-036504

PATIENT
  Age: 57 Year
  Sex: Male
  Weight: 95 kg

DRUGS (2)
  1. POMALYST [Suspect]
     Active Substance: POMALIDOMIDE
     Indication: Plasma cell myeloma in remission
     Dosage: D 1-21 Q 28 DAYS
     Route: 048
     Dates: start: 20230215, end: 20230218
  2. POMALYST [Suspect]
     Active Substance: POMALIDOMIDE
     Dosage: D 1-21 Q 28 DAYS
     Route: 048
     Dates: start: 20230325

REACTIONS (4)
  - Swelling face [Unknown]
  - Eye swelling [Unknown]
  - Erythema [Unknown]
  - Oedema [Not Recovered/Not Resolved]

NARRATIVE: CASE EVENT DATE: 20230215
